FAERS Safety Report 18099080 (Version 1)
Quarter: 2020Q3

REPORT INFORMATION
  Report Type: Spontaneous
  Country: US (occurrence: US)
  Receive Date: 20200731
  Receipt Date: 20200731
  Transmission Date: 20201103
  Serious: Yes (Other)
  Sender: FDA-Public Use
  Company Number: None

PATIENT
  Age: 27 Year
  Sex: Female
  Weight: 99 kg

DRUGS (1)
  1. SCENT THEORY ? KEEP CLEAN MOISTURIZING HAND SANITIZER [Suspect]
     Active Substance: ALCOHOL

REACTIONS (6)
  - Product contamination [None]
  - Malaise [None]
  - Nausea [None]
  - Vomiting [None]
  - Loss of employment [None]
  - Impaired work ability [None]

NARRATIVE: CASE EVENT DATE: 20200707
